FAERS Safety Report 13859437 (Version 1)
Quarter: 2017Q3

REPORT INFORMATION
  Report Type: Spontaneous
  Country: SA (occurrence: SA)
  Receive Date: 20170811
  Receipt Date: 20170811
  Transmission Date: 20171127
  Serious: Yes (Other)
  Sender: FDA-Public Use
  Company Number: SA-UCBSA-2017030518

PATIENT
  Age: 84 Year
  Sex: Female

DRUGS (1)
  1. KEPPRA [Suspect]
     Active Substance: LEVETIRACETAM
     Indication: PARTIAL SEIZURES
     Dosage: 250 MG, 2X/DAY (BID)
     Route: 048

REACTIONS (1)
  - Loss of consciousness [Not Recovered/Not Resolved]
